FAERS Safety Report 16593703 (Version 1)
Quarter: 2019Q3

REPORT INFORMATION
  Report Type: Spontaneous
  Country: FR (occurrence: FR)
  Receive Date: 20190718
  Receipt Date: 20190718
  Transmission Date: 20191004
  Serious: Yes (Hospitalization)
  Sender: FDA-Public Use
  Company Number: FR-TEVA-2019-FR-1078815

PATIENT
  Age: 69 Year
  Sex: Female
  Weight: 53 kg

DRUGS (6)
  1. CARBOPLATINE [Suspect]
     Active Substance: CARBOPLATIN
     Indication: PANCREATIC CARCINOMA
     Dosage: C1
     Route: 041
     Dates: start: 20190515, end: 20190515
  2. SPASFON, COMPRIM? ENROB? [Concomitant]
     Route: 048
  3. ACUPAN [Concomitant]
     Active Substance: NEFOPAM HYDROCHLORIDE
  4. IMOVANE [Concomitant]
     Active Substance: ZOPICLONE
     Route: 048
  5. VEPESIDE [Suspect]
     Active Substance: ETOPOSIDE
     Indication: PANCREATIC CARCINOMA
     Dosage: C1 153 MG / DAY FOR 3 DAYS
     Route: 041
     Dates: start: 20190515, end: 20190517
  6. PRAZEPAM [Concomitant]
     Active Substance: PRAZEPAM
     Route: 048

REACTIONS (2)
  - Chronic kidney disease [Recovered/Resolved]
  - Febrile bone marrow aplasia [Recovered/Resolved]

NARRATIVE: CASE EVENT DATE: 20190524
